FAERS Safety Report 24422451 (Version 1)
Quarter: 2024Q4

REPORT INFORMATION
  Report Type: Spontaneous
  Country: US (occurrence: None)
  Receive Date: 20241009
  Receipt Date: 20241009
  Transmission Date: 20250115
  Serious: Yes (Hospitalization)
  Sender: Public
  Company Number: None

PATIENT
  Age: 79 Year
  Sex: Male
  Weight: 95 kg

DRUGS (1)
  1. ATENOLOL [Suspect]
     Active Substance: ATENOLOL
     Indication: Cardiac failure congestive
     Dosage: FREQUENCY : DAILY;?
     Route: 048

REACTIONS (3)
  - Dizziness [None]
  - Fatigue [None]
  - Heart rate decreased [None]

NARRATIVE: CASE EVENT DATE: 20231025
